FAERS Safety Report 5626943-9 (Version None)
Quarter: 2008Q1

REPORT INFORMATION
  Report Type: 
  Country: None (occurrence: None)
  Receive Date: 20080212
  Receipt Date: 20080129
  Transmission Date: 20080703
  Serious: Yes (Death, Hospitalization)
  Sender: FDA-Public Use
  Company Number: B0506870A

PATIENT
  Age: 20 Day
  Sex: Female

DRUGS (1)
  1. ZIDOVUDINE [Suspect]
     Indication: HIV INFECTION
     Dosage: 20 MG/KG/FOUR TIMES PER DAY/ORAL
     Route: 048

REACTIONS (19)
  - ABSCESS [None]
  - ACCIDENTAL OVERDOSE [None]
  - ANAEMIA NEONATAL [None]
  - BACTERIAL SEPSIS [None]
  - CEREBRAL PALSY [None]
  - CEREBRAL SALT-WASTING SYNDROME [None]
  - CONVULSION NEONATAL [None]
  - EMPYEMA [None]
  - ENCEPHALITIS [None]
  - FEEDING DISORDER NEONATAL [None]
  - HYDROCEPHALUS [None]
  - HYPOTHERMIA [None]
  - HYPOTONIA NEONATAL [None]
  - LETHARGY [None]
  - NEUTROPENIA [None]
  - NEUTROPENIA NEONATAL [None]
  - PALLOR [None]
  - PNEUMONIA ASPIRATION [None]
  - STREPTOCOCCAL INFECTION [None]
